FAERS Safety Report 5928250-3 (Version None)
Quarter: 2008Q4

REPORT INFORMATION
  Report Type: 
  Country: None (occurrence: None)
  Receive Date: 20081022
  Receipt Date: 20081022
  Transmission Date: 20090506
  Serious: Yes (Other)
  Sender: FDA-Public Use
  Company Number: None

PATIENT
  Sex: Male
  Weight: 78.93 kg

DRUGS (11)
  1. IODIXANOL 320 MGI/ML AMERSHAM HEALTH [Suspect]
     Indication: ACUTE MYOCARDIAL INFARCTION
     Dosage: 150 ML ONCE IV BOLUS
     Route: 040
     Dates: start: 20080206, end: 20080206
  2. IODIXANOL 320 MGI/ML AMERSHAM HEALTH [Suspect]
     Indication: CATHETERISATION CARDIAC
     Dosage: 150 ML ONCE IV BOLUS
     Route: 040
     Dates: start: 20080206, end: 20080206
  3. IODIXANOL 320 MGI/ML AMERSHAM HEALTH [Suspect]
     Indication: PERCUTANEOUS CORONARY INTERVENTION
     Dosage: 150 ML ONCE IV BOLUS
     Route: 040
     Dates: start: 20080213, end: 20080213
  4. IODIXANOL 320 MGI/ML AMERSHAM HEALTH [Suspect]
     Indication: STENT PLACEMENT
     Dosage: 150 ML ONCE IV BOLUS
     Route: 040
     Dates: start: 20080213, end: 20080213
  5. CALCITRIOL [Concomitant]
  6. LABETALOL HCL [Concomitant]
  7. FLUTICASONE PROPIONATE [Concomitant]
  8. NISOLDIPINE [Concomitant]
  9. ADVAIR DISKUS 100/50 [Concomitant]
  10. ASPIRIN [Concomitant]
  11. FERROUS SULFATE [Concomitant]

REACTIONS (4)
  - ACUTE MYOCARDIAL INFARCTION [None]
  - HAEMODIALYSIS [None]
  - NEPHROPATHY TOXIC [None]
  - RENAL FAILURE CHRONIC [None]
